FAERS Safety Report 6751522-X (Version None)
Quarter: 2010Q2

REPORT INFORMATION
  Report Type: 
  Country: None (occurrence: None)
  Receive Date: 20100528
  Receipt Date: 20100520
  Transmission Date: 20101027
  Serious: Yes (Other)
  Sender: FDA-Public Use
  Company Number: DSA_43156_2010

PATIENT
  Sex: Female

DRUGS (5)
  1. XENAZINE [Suspect]
     Indication: DYSTONIA
     Dosage: 12.5 MG TID ORAL
     Route: 048
     Dates: start: 20100301, end: 20100501
  2. CLONAZEPAM [Concomitant]
  3. LIPITOR [Concomitant]
  4. ALBUTEROL [Concomitant]
  5. TRIHEXYPHENIDYL HCL [Concomitant]

REACTIONS (6)
  - AMNESIA [None]
  - CONDITION AGGRAVATED [None]
  - DIZZINESS [None]
  - FEELING ABNORMAL [None]
  - MUSCLE SPASMS [None]
  - RASH MACULAR [None]
